FAERS Safety Report 4360996-3 (Version None)
Quarter: 2004Q2

REPORT INFORMATION
  Report Type: 
  Country: None (occurrence: None)
  Receive Date: 20040517
  Receipt Date: 20040511
  Transmission Date: 20050107
  Serious: Yes (Hospitalization)
  Sender: FDA-Public Use
  Company Number: STA-AE-04-MTX-159

PATIENT
  Age: 32 Year
  Sex: Female

DRUGS (4)
  1. METHOTREXATE [Suspect]
     Indication: ABORTION INDUCED
     Dosage: 22.5 MG 1X PER 1 DAY, ORAL
     Route: 048
     Dates: start: 20040317, end: 20040321
  2. METHERGINE [Concomitant]
  3. TARIVID (OFLOXACIN HYDROCHLORIDE) [Concomitant]
  4. TETUCUR (FEROPOLIMALER) [Concomitant]

REACTIONS (4)
  - ALOPECIA [None]
  - APHAGIA [None]
  - OCULOMUCOCUTANEOUS SYNDROME [None]
  - STOMATITIS [None]
